FAERS Safety Report 9601805 (Version 1)
Quarter: 2013Q4

REPORT INFORMATION
  Report Type: Spontaneous
  Country: US (occurrence: None)
  Receive Date: 20131004
  Receipt Date: 20131004
  Transmission Date: 20140711
  Serious: Yes (Disabling, Other)
  Sender: FDA-Public Use
  Company Number: None

PATIENT
  Age: 0 Day
  Sex: Female

DRUGS (8)
  1. PROLIA [Suspect]
     Dates: start: 20110505, end: 20130505
  2. ATENOLOL [Concomitant]
  3. PAROXETINE [Concomitant]
  4. LOSARTAN [Concomitant]
  5. METFORMIN [Concomitant]
  6. SIMVASTATIN [Concomitant]
  7. ALEVE [Concomitant]
  8. B-E-D-FISH OIL CRANBERRY [Concomitant]

REACTIONS (2)
  - Arthralgia [None]
  - Arthralgia [None]
